FAERS Safety Report 10521680 (Version 1)
Quarter: 2014Q4

REPORT INFORMATION
  Report Type: Spontaneous
  Country: US (occurrence: None)
  Receive Date: 20141003
  Receipt Date: 20141003
  Transmission Date: 20150528
  Serious: Yes (Other)
  Sender: FDA-Public Use
  Company Number: 1190175

PATIENT
  Age: 54 Year
  Sex: Female

DRUGS (3)
  1. PEGASYS [Suspect]
     Active Substance: PEGINTERFERON ALFA-2A
     Indication: CHRONIC HEPATITIS C
     Route: 058
     Dates: start: 20130207
  2. TELAPREVIR (TELAPREVIR) [Suspect]
     Active Substance: TELAPREVIR
     Indication: CHRONIC HEPATITIS C
     Dates: start: 20130207, end: 20130502
  3. RIBASPHERE [Suspect]
     Active Substance: RIBAVIRIN
     Indication: CHRONIC HEPATITIS C
     Dosage: 1200 MG/DAY DIVIDED DOSES ORALLY 600/600 (600 MG, 2 IN 1 D), ORAL
     Route: 048
     Dates: start: 20130207

REACTIONS (10)
  - Anaemia [None]
  - Headache [None]
  - Burning sensation [None]
  - Dizziness [None]
  - Painful defaecation [None]
  - Full blood count decreased [None]
  - Dermatitis bullous [None]
  - Fatigue [None]
  - Injection site reaction [None]
  - Pyrexia [None]

NARRATIVE: CASE EVENT DATE: 20130619
